FAERS Safety Report 6541090-X (Version None)
Quarter: 2010Q1

REPORT INFORMATION
  Report Type: 
  Country: None (occurrence: None)
  Receive Date: 20100118
  Receipt Date: 20100111
  Transmission Date: 20100710
  Serious: Yes (Hospitalization)
  Sender: FDA-Public Use
  Company Number: US-BRISTOL-MYERS SQUIBB COMPANY-14803886

PATIENT
  Age: 49 Year
  Sex: Female

DRUGS (4)
  1. BLINDED: ARIPIPRAZOLE IM [Suspect]
     Indication: SCHIZOPHRENIA
     Dates: start: 20090916, end: 20090923
  2. BLINDED: PLACEBO [Suspect]
     Indication: SCHIZOPHRENIA
     Dates: start: 20090916, end: 20090923
  3. ATIVAN [Concomitant]
     Dates: start: 20090819
  4. AMBIEN [Concomitant]
     Dates: start: 20090909

REACTIONS (1)
  - PSYCHOTIC DISORDER [None]
